FAERS Safety Report 10732847 (Version 1)
Quarter: 2015Q1

REPORT INFORMATION
  Report Type: Spontaneous
  Country: FI (occurrence: None)
  Receive Date: 20150120
  Receipt Date: 20150120
  Transmission Date: 20150721
  Serious: Yes (Life-Threatening, Other)
  Sender: FDA-Public Use
  Company Number: 2698020

PATIENT
  Age: 74 Year
  Sex: Male

DRUGS (3)
  1. (OXALIPLATIN) [Suspect]
     Active Substance: OXALIPLATIN
     Indication: NEOPLASM MALIGNANT
     Dosage: (NOT OTHERWISE SPECIFIED)
     Route: 042
     Dates: start: 20130613, end: 20141013
  2. (CAPECITABINUM) [Concomitant]
  3. (OXALIPLATIN) [Suspect]
     Active Substance: OXALIPLATIN
     Indication: METASTASIS
     Dosage: (NOT OTHERWISE SPECIFIED)
     Route: 042
     Dates: start: 20130613, end: 20141013

REACTIONS (6)
  - Pulmonary embolism [None]
  - Abdominal pain [None]
  - Erythema [None]
  - Pruritus [None]
  - Dizziness [None]
  - Nausea [None]

NARRATIVE: CASE EVENT DATE: 201306
